FAERS Safety Report 18969066 (Version 14)
Quarter: 2021Q2

REPORT INFORMATION
  Report Type: Report from Study
  Country: BR (occurrence: BR)
  Receive Date: 20210304
  Receipt Date: 20210615
  Transmission Date: 20210717
  Serious: Yes (Death, Life-Threatening, Hospitalization, Disabling, Other)
  Sender: FDA-Public Use
  Company Number: BR-BRISTOL-MYERS SQUIBB COMPANY-BMS-2021-018962

PATIENT
  Age: 61 Year
  Sex: Male
  Weight: 73 kg

DRUGS (21)
  1. ENTECAVIR. [Concomitant]
     Active Substance: ENTECAVIR
     Indication: PRODUCT USED FOR UNKNOWN INDICATION
     Dosage: 1 MILLIGRAM
     Route: 048
     Dates: start: 20200615, end: 20210406
  2. ESCITALOPRAM [Concomitant]
     Active Substance: ESCITALOPRAM OXALATE
     Indication: PRODUCT USED FOR UNKNOWN INDICATION
     Dosage: 10 MILLIGRAM
     Route: 048
     Dates: start: 20200801
  3. SPIRONOLACTONE. [Concomitant]
     Active Substance: SPIRONOLACTONE
     Indication: ASCITES
     Dosage: 100 MILLIGRAM
     Route: 048
     Dates: start: 20210401
  4. FUROSEMIDE. [Concomitant]
     Active Substance: FUROSEMIDE
     Indication: HYPERCALCAEMIA
     Dosage: 80 MILLIGRAM
     Route: 042
     Dates: start: 20210420, end: 20210421
  5. LORATADINE. [Concomitant]
     Active Substance: LORATADINE
     Indication: PRURITUS
     Dosage: 10 MILLIGRAM
     Route: 048
     Dates: start: 20210401
  6. OMEPRAZOLE. [Concomitant]
     Active Substance: OMEPRAZOLE
     Indication: PRODUCT USED FOR UNKNOWN INDICATION
     Dosage: 80 MILLIGRAM
     Route: 042
     Dates: start: 20210420
  7. FENOTEROL [Concomitant]
     Active Substance: FENOTEROL
     Indication: PRODUCT USED FOR UNKNOWN INDICATION
     Dosage: 1 DOSAGE FORM
     Route: 055
     Dates: start: 20210420
  8. GLUCOSE [Concomitant]
     Active Substance: DEXTROSE
     Indication: HYPERKALAEMIA
     Dosage: 1 DOSAGE FORM
     Route: 042
     Dates: start: 20210420
  9. CLONAZEPAM. [Concomitant]
     Active Substance: CLONAZEPAM
     Dosage: 2 MILLIGRAM
     Route: 048
     Dates: start: 20210421, end: 20210421
  10. LACTULOSE. [Concomitant]
     Active Substance: LACTULOSE
     Indication: PRODUCT USED FOR UNKNOWN INDICATION
     Dosage: 1 DOSAGE FORM
     Route: 048
     Dates: start: 20210420
  11. INSULIN HUMAN [Concomitant]
     Active Substance: INSULIN HUMAN
     Indication: HYPERKALAEMIA
     Dosage: 1 DOSAGE FORM
     Route: 042
     Dates: start: 20210420
  12. IPILIMUMAB [Suspect]
     Active Substance: IPILIMUMAB
     Indication: HEPATOCELLULAR CARCINOMA
     Dosage: 218.4 MILLIGRAM
     Route: 042
     Dates: start: 20210105, end: 20210301
  13. NIVOLUMAB [Suspect]
     Active Substance: NIVOLUMAB
     Indication: HEPATOCELLULAR CARCINOMA
     Dosage: 72.8 MILLIGRAM
     Route: 042
     Dates: start: 20210105, end: 20210301
  14. TENOFOVIR [Concomitant]
     Active Substance: TENOFOVIR
     Indication: ANTIVIRAL TREATMENT
     Dosage: 300 MILLIGRAM
     Route: 048
     Dates: start: 20210407
  15. LOSARTAN. [Concomitant]
     Active Substance: LOSARTAN
     Indication: PRODUCT USED FOR UNKNOWN INDICATION
     Dosage: 50 MILLIGRAM
     Route: 048
     Dates: start: 20150615
  16. FUROSEMIDE. [Concomitant]
     Active Substance: FUROSEMIDE
     Indication: ASCITES
     Dosage: 40 MILLIGRAM
     Route: 048
     Dates: start: 20210401, end: 20210405
  17. CLONAZEPAM. [Concomitant]
     Active Substance: CLONAZEPAM
     Indication: INSOMNIA
     Dosage: 2 MILLIGRAM
     Route: 048
     Dates: start: 20200801, end: 20210419
  18. KETOCONAZOLE. [Concomitant]
     Active Substance: KETOCONAZOLE
     Indication: LIMB INJURY
     Dosage: 4 GRAM
     Route: 061
     Dates: start: 20210218
  19. DIPYRONE [Concomitant]
     Active Substance: DIPYRONE
     Indication: ABDOMINAL PAIN
     Dosage: 1 GRAM
     Route: 042
     Dates: start: 20210421
  20. METOCLOPRAMIDE. [Concomitant]
     Active Substance: METOCLOPRAMIDE
     Indication: PRODUCT USED FOR UNKNOWN INDICATION
     Dosage: 30 MILLIGRAM
     Route: 042
     Dates: start: 20210420
  21. SALINE [SODIUM CHLORIDE] [Concomitant]
     Active Substance: SODIUM CHLORIDE
     Indication: PRODUCT USED FOR UNKNOWN INDICATION
     Dosage: 1 DOSAGE FORM
     Route: 042
     Dates: start: 20210420

REACTIONS (5)
  - Hepatic failure [Fatal]
  - Lipase increased [Recovered/Resolved]
  - Blood bilirubin increased [Not Recovered/Not Resolved]
  - Aspartate aminotransferase increased [Recovered/Resolved]
  - Alanine aminotransferase increased [Recovered/Resolved]

NARRATIVE: CASE EVENT DATE: 20210217
